FAERS Safety Report 13832225 (Version 1)
Quarter: 2017Q3

REPORT INFORMATION
  Report Type: Spontaneous
  Country: ZA (occurrence: ZA)
  Receive Date: 20170804
  Receipt Date: 20170804
  Transmission Date: 20171127
  Serious: Yes (Death, Hospitalization)
  Sender: FDA-Public Use
  Company Number: ZA-CONCORDIA PHARMACEUTICALS INC.-E2B_00007967

PATIENT
  Age: 80 Year
  Sex: Male

DRUGS (1)
  1. POLYSTYRENE SULFONATE [Suspect]
     Active Substance: POLYSTYRENE SULFONIC ACID
     Indication: PRODUCT USED FOR UNKNOWN INDICATION
     Route: 065

REACTIONS (1)
  - Hypokalaemia [Fatal]
